FAERS Safety Report 7539437-0 (Version None)
Quarter: 2011Q2

REPORT INFORMATION
  Report Type: 
  Country: None (occurrence: None)
  Receive Date: 20110610
  Receipt Date: 20110603
  Transmission Date: 20111010
  Serious: Yes (Hospitalization, Other)
  Sender: FDA-Public Use
  Company Number: BR-PFIZER INC-2011124973

PATIENT
  Age: 48 Year
  Sex: Female

DRUGS (1)
  1. SUTENT [Suspect]
     Dosage: 50 MG, UNK
     Route: 048
     Dates: start: 20110119

REACTIONS (5)
  - HAEMATEMESIS [None]
  - DYSPEPSIA [None]
  - VOLUME BLOOD DECREASED [None]
  - NAUSEA [None]
  - ASTHENIA [None]
